FAERS Safety Report 6534346-8 (Version None)
Quarter: 2010Q1

REPORT INFORMATION
  Report Type: 
  Country: None (occurrence: None)
  Receive Date: 20100112
  Receipt Date: 20100106
  Transmission Date: 20100710
  Serious: Yes (Other)
  Sender: FDA-Public Use
  Company Number: BR-SANOFI-AVENTIS-2010SA000936

PATIENT
  Age: 72 Year
  Sex: Male
  Weight: 70 kg

DRUGS (3)
  1. CLOPIDOGREL BISULFATE [Suspect]
     Indication: ISCHAEMIA
     Route: 048
     Dates: start: 20081201
  2. LIPITOR [Concomitant]
     Route: 048
     Dates: start: 20081201
  3. SOMALGIN [Concomitant]
     Route: 048
     Dates: start: 20081201

REACTIONS (5)
  - DRY SKIN [None]
  - ERYTHEMA [None]
  - LUNG NEOPLASM [None]
  - PRURITUS [None]
  - URTICARIA [None]
